FAERS Safety Report 12192425 (Version 1)
Quarter: 2016Q1

REPORT INFORMATION
  Report Type: Spontaneous
  Country: FI (occurrence: FI)
  Receive Date: 20160318
  Receipt Date: 20160318
  Transmission Date: 20160526
  Serious: Yes (Other)
  Sender: FDA-Public Use
  Company Number: FI-ELI_LILLY_AND_COMPANY-FI201603003684

PATIENT
  Sex: Male

DRUGS (1)
  1. ABASAGLAR [Suspect]
     Active Substance: INSULIN GLARGINE
     Indication: PRODUCT USED FOR UNKNOWN INDICATION
     Dosage: 12 IU, QD
     Route: 065
     Dates: start: 20160304

REACTIONS (4)
  - Nasopharyngitis [Unknown]
  - Weight decreased [Unknown]
  - Fatigue [Unknown]
  - Pancreatitis [Unknown]
